FAERS Safety Report 8071235-4 (Version None)
Quarter: 2012Q1

REPORT INFORMATION
  Report Type: 
  Country: None (occurrence: None)
  Receive Date: 20120125
  Receipt Date: 20120120
  Transmission Date: 20120608
  Serious: Yes (Hospitalization)
  Sender: FDA-Public Use
  Company Number: PHHY2012FR005604

PATIENT
  Sex: Male

DRUGS (5)
  1. AMLODIPINE BESYLATE [Concomitant]
     Dosage: 10 MG, QD
     Dates: end: 20111202
  2. OMEPRAZOLE [Concomitant]
     Dosage: 20 MG, QD
     Dates: end: 20111202
  3. IRBESARTAN AND HYDROCHLOROTHIAZIDE [Concomitant]
     Dosage: 1505/12.5 MG QD
     Dates: end: 20111202
  4. ASPIRIN [Interacting]
     Indication: SCIATICA
     Dosage: 75 MG, QD
     Dates: end: 20111202
  5. VOLTAREN [Suspect]
     Indication: SCIATICA
     Dosage: UNK
     Dates: start: 20111120, end: 20111128

REACTIONS (10)
  - RENAL FAILURE ACUTE [None]
  - GASTROINTESTINAL HAEMORRHAGE [None]
  - ANAEMIA [None]
  - GASTRIC ULCER [None]
  - HYPOTENSION [None]
  - MELAENA [None]
  - TROPONIN INCREASED [None]
  - INTERVERTEBRAL DISC SPACE NARROWING [None]
  - HAEMATEMESIS [None]
  - HYPONATRAEMIA [None]
